FAERS Safety Report 12167829 (Version 1)
Quarter: 2016Q1

REPORT INFORMATION
  Report Type: Spontaneous
  Country: US (occurrence: None)
  Receive Date: 20160309
  Receipt Date: 20160309
  Transmission Date: 20160526
  Serious: Yes (Other)
  Sender: FDA-Public Use
  Company Number: None

PATIENT
  Age: 56 Year
  Sex: Male
  Weight: 67.59 kg

DRUGS (5)
  1. CARISOPRODOL 350MG TAB - BY SUN - GENERIC FOR SOMA [Suspect]
     Active Substance: CARISOPRODOL
     Indication: MUSCLE SPASMS
     Route: 048
     Dates: start: 20151007, end: 20151017
  2. SOMA [Concomitant]
     Active Substance: CARISOPRODOL
  3. XANAX [Concomitant]
     Active Substance: ALPRAZOLAM
  4. METOPROLOL. [Concomitant]
     Active Substance: METOPROLOL
  5. PURE BAKING SODA [Concomitant]
     Active Substance: SODIUM BICARBONATE

REACTIONS (14)
  - Condition aggravated [None]
  - Insomnia [None]
  - Product physical issue [None]
  - Tremor [None]
  - Hyperhidrosis [None]
  - Product substitution issue [None]
  - Rectal haemorrhage [None]
  - Muscle spasms [None]
  - Asthenia [None]
  - No therapeutic response [None]
  - Headache [None]
  - Nausea [None]
  - Balance disorder [None]
  - Abdominal pain [None]

NARRATIVE: CASE EVENT DATE: 20151010
